FAERS Safety Report 24759389 (Version 1)
Quarter: 2024Q4

REPORT INFORMATION
  Report Type: Spontaneous
  Country: US (occurrence: US)
  Receive Date: 20241220
  Receipt Date: 20241220
  Transmission Date: 20250115
  Serious: No
  Sender: BRAEBURN PHARMACEUTICALS
  Company Number: US-BRAEBURN-US-BRA-24-000937

PATIENT
  Sex: Male

DRUGS (2)
  1. BRIXADI [Suspect]
     Active Substance: BUPRENORPHINE
     Indication: Drug use disorder
     Dosage: 16 MILLIGRAM, WEEKLY
     Route: 058
     Dates: end: 20240828
  2. BRIXADI [Suspect]
     Active Substance: BUPRENORPHINE
     Dosage: 64 MILLIGRAM, MONTHLY
     Route: 065
     Dates: start: 20240904

REACTIONS (8)
  - Injection site warmth [Recovering/Resolving]
  - Injection site inflammation [Recovering/Resolving]
  - Injection site induration [Recovered/Resolved]
  - Injection site erythema [Unknown]
  - Injection site swelling [Unknown]
  - Injection site pruritus [Unknown]
  - Injection site reaction [Unknown]
  - Rash [Recovering/Resolving]
